FAERS Safety Report 4439116-2 (Version None)
Quarter: 2004Q3

REPORT INFORMATION
  Report Type: 
  Country: None (occurrence: None)
  Receive Date: 20040831
  Receipt Date: 20040818
  Transmission Date: 20050211
  Serious: Yes (Other)
  Sender: FDA-Public Use
  Company Number: 2004-BP-07053YA

PATIENT
  Age: 69 Year
  Sex: Male

DRUGS (3)
  1. HARNAL (TAMSULOSIN) [Suspect]
     Dosage: PO
     Route: 048
  2. CHLORMADINONE ACETATE TAB [Concomitant]
  3. MELILOT [Concomitant]

REACTIONS (1)
  - JAUNDICE [None]
